FAERS Safety Report 4787859-3 (Version None)
Quarter: 2005Q4

REPORT INFORMATION
  Report Type: 
  Country: None (occurrence: None)
  Receive Date: 20051004
  Receipt Date: 20050930
  Transmission Date: 20060501
  Serious: Yes (Death, Congenital Anomaly)
  Sender: FDA-Public Use
  Company Number: FR-MERCK-0510FRA00002B1

PATIENT
  Age: -29 Day
  Sex: Male
  Weight: 1 kg

DRUGS (4)
  1. HYZAAR [Suspect]
     Indication: HYPERTENSION
     Dates: start: 20040101, end: 20050520
  2. ROSIGLITAZONE MALEATE [Suspect]
     Indication: DIABETES MELLITUS
     Dates: start: 20040101, end: 20050520
  3. METFORMIN [Suspect]
     Indication: DIABETES MELLITUS
     Dates: start: 20040101, end: 20050520
  4. GLYBURIDE [Suspect]
     Indication: DIABETES MELLITUS
     Dates: start: 20040101, end: 20050520

REACTIONS (4)
  - ABORTION INDUCED [None]
  - CEREBRAL VENTRICLE DILATATION [None]
  - DRUG EXPOSURE DURING PREGNANCY [None]
  - HYDROCEPHALUS [None]
